FAERS Safety Report 7470003-1 (Version None)
Quarter: 2011Q2

REPORT INFORMATION
  Report Type: 
  Country: None (occurrence: None)
  Receive Date: 20110506
  Receipt Date: 20110506
  Transmission Date: 20111010
  Serious: Yes (Hospitalization)
  Sender: FDA-Public Use
  Company Number: None

PATIENT
  Age: 63 Year
  Sex: Male
  Weight: 127 kg

DRUGS (1)
  1. CLOZARIL [Suspect]
     Indication: SCHIZOPHRENIA, PARANOID TYPE
     Dosage: 600 MG EVERY DAY PO
     Route: 048
     Dates: start: 20070927, end: 20110303

REACTIONS (5)
  - SMALL INTESTINAL OBSTRUCTION [None]
  - INFECTION [None]
  - HYPOTHYROIDISM [None]
  - GASTROINTESTINAL HYPOMOTILITY [None]
  - ABDOMINAL ADHESIONS [None]
